FAERS Safety Report 6635689-X (Version None)
Quarter: 2010Q1

REPORT INFORMATION
  Report Type: 
  Country: None (occurrence: None)
  Receive Date: 20100312
  Receipt Date: 20100312
  Transmission Date: 20100710
  Serious: Yes (Hospitalization)
  Sender: FDA-Public Use
  Company Number: None

PATIENT
  Sex: Male
  Weight: 78.7 kg

DRUGS (6)
  1. PEG-L-ASPARAGINASE (K-H) [Suspect]
     Dosage: 5000 MG
  2. VINCRISTINE SULFATE [Suspect]
     Dosage: 4 MG
  3. CYCLOPHOSPHAMIDE [Suspect]
     Dosage: 2000 MG
  4. CYTARABINE [Suspect]
     Dosage: 1200 MG
  5. MERCAPTOPURINE [Suspect]
     Dosage: 1600 MG
  6. METHOTREXATE [Suspect]
     Dosage: 60 MG

REACTIONS (2)
  - PLATELET COUNT DECREASED [None]
  - SUPERIOR SAGITTAL SINUS THROMBOSIS [None]
